FAERS Safety Report 16894955 (Version 1)
Quarter: 2019Q4

REPORT INFORMATION
  Report Type: Spontaneous
  Country: US (occurrence: US)
  Receive Date: 20191008
  Receipt Date: 20191008
  Transmission Date: 20200122
  Serious: No
  Sender: FDA-Public Use
  Company Number: US-INDIVIOR US-INDV-115241-2018

PATIENT
  Sex: Female

DRUGS (3)
  1. SUBOXONE [Suspect]
     Active Substance: BUPRENORPHINE HYDROCHLORIDE\NALOXONE HYDROCHLORIDE
     Dosage: 4 MG, QD
     Route: 060
     Dates: start: 201810
  2. SUBOXONE [Suspect]
     Active Substance: BUPRENORPHINE HYDROCHLORIDE\NALOXONE HYDROCHLORIDE
     Indication: DRUG DEPENDENCE
     Dosage: 4 MG, QD
     Route: 060
     Dates: start: 201810, end: 201810
  3. SUBOXONE [Suspect]
     Active Substance: BUPRENORPHINE HYDROCHLORIDE\NALOXONE HYDROCHLORIDE
     Indication: DRUG DEPENDENCE
     Dosage: 4 MG, QD
     Route: 060
     Dates: start: 201810, end: 201810

REACTIONS (10)
  - Disorientation [Unknown]
  - Wrong technique in product usage process [Recovered/Resolved]
  - Tongue discomfort [Unknown]
  - Oropharyngeal pain [Unknown]
  - Disturbance in attention [Unknown]
  - Flushing [Unknown]
  - Feeling hot [Unknown]
  - Confusional state [Unknown]
  - Dental caries [Unknown]
  - Tongue erythema [Unknown]

NARRATIVE: CASE EVENT DATE: 201810
